FAERS Safety Report 15127485 (Version 1)
Quarter: 2018Q3

REPORT INFORMATION
  Report Type: Spontaneous
  Country: US (occurrence: US)
  Receive Date: 20180710
  Receipt Date: 20180710
  Transmission Date: 20181010
  Serious: Yes (Other)
  Sender: FDA-Public Use
  Company Number: US-PFIZER INC-2018274136

PATIENT
  Age: 21 Year
  Sex: Male

DRUGS (3)
  1. GENOTROPIN [Suspect]
     Active Substance: SOMATROPIN
     Dosage: 1.2 MG, DAILY
     Dates: start: 2016
  2. LEVOTHYROXINE SODIUM. [Suspect]
     Active Substance: LEVOTHYROXINE SODIUM
     Dosage: UNK
  3. DESMOPRESSIN ACETATE. [Suspect]
     Active Substance: DESMOPRESSIN ACETATE
     Dosage: UNK

REACTIONS (11)
  - Polydipsia [Unknown]
  - Diabetes insipidus [Recovering/Resolving]
  - Swelling face [Unknown]
  - Asthenia [Unknown]
  - Fatigue [Unknown]
  - Nocturia [Unknown]
  - Abdominal distension [Unknown]
  - Gastrooesophageal reflux disease [Unknown]
  - Respiratory disorder [Unknown]
  - Polyuria [Unknown]
  - Acne [Unknown]
